FAERS Safety Report 5778748-6 (Version None)
Quarter: 2008Q2

REPORT INFORMATION
  Report Type: 
  Country: None (occurrence: None)
  Receive Date: 20080619
  Receipt Date: 20080422
  Transmission Date: 20081010
  Serious: Yes (Other)
  Sender: FDA-Public Use
  Company Number: US-ASTRAZENECA-2008UW08221

PATIENT
  Age: 37 Year
  Sex: Female

DRUGS (1)
  1. SYMBICORT [Suspect]
     Indication: COUGH
     Route: 055

REACTIONS (2)
  - HYPERTENSION [None]
  - PAIN IN JAW [None]
